FAERS Safety Report 17359178 (Version 2)
Quarter: 2020Q1

REPORT INFORMATION
  Report Type: Report from Study
  Country: US (occurrence: US)
  Receive Date: 20200203
  Receipt Date: 20200313
  Transmission Date: 20200409
  Serious: Yes (Other)
  Sender: FDA-Public Use
  Company Number: US-SHIRE-US202003688

PATIENT
  Sex: Female
  Weight: 70.75 kg

DRUGS (2)
  1. TEDUGLUTIDE [Suspect]
     Active Substance: TEDUGLUTIDE
     Indication: LIPASE INCREASED
     Dosage: 0.41 MILLILITER
     Route: 050
  2. TEDUGLUTIDE [Suspect]
     Active Substance: TEDUGLUTIDE
     Indication: ABDOMINAL PAIN UPPER
     Dosage: UNK, 1X/DAY:QD
     Route: 058
     Dates: start: 20170129

REACTIONS (2)
  - Pancreatitis [Not Recovered/Not Resolved]
  - Intentional product use issue [Unknown]
